FAERS Safety Report 4568148-9 (Version None)
Quarter: 2005Q1

REPORT INFORMATION
  Report Type: 
  Country: None (occurrence: None)
  Receive Date: 20050128
  Receipt Date: 20050124
  Transmission Date: 20050727
  Serious: Yes (Other)
  Sender: FDA-Public Use
  Company Number: S04-USA-07727-01

PATIENT
  Age: 59 Year
  Sex: Female

DRUGS (2)
  1. LEXAPRO [Suspect]
     Indication: ANXIETY
     Dates: start: 20040601, end: 20040101
  2. TAMOXIFEN CITRATE [Concomitant]

REACTIONS (5)
  - ABSCESS [None]
  - FURUNCLE [None]
  - IMMUNE SYSTEM DISORDER [None]
  - THERAPY NON-RESPONDER [None]
  - VAGINAL ABSCESS [None]
